FAERS Safety Report 20797767 (Version 6)
Quarter: 2022Q2

REPORT INFORMATION
  Report Type: Spontaneous
  Country: ES (occurrence: ES)
  Receive Date: 20220506
  Receipt Date: 20220630
  Transmission Date: 20220721
  Serious: Yes (Other)
  Sender: FDA-Public Use
  Company Number: ES-BIOGEN-2022BI01119391

PATIENT
  Sex: Female

DRUGS (1)
  1. TECFIDERA [Suspect]
     Active Substance: DIMETHYL FUMARATE
     Indication: Multiple sclerosis
     Route: 050
     Dates: start: 2020

REACTIONS (10)
  - Epilepsy [Unknown]
  - Brain neoplasm [Unknown]
  - Scoliosis [Unknown]
  - Pain in extremity [Unknown]
  - Back pain [Unknown]
  - Nasal septum deviation [Unknown]
  - Sciatica [Unknown]
  - Dysgeusia [Unknown]
  - Dry mouth [Unknown]
  - Dyspnoea [Unknown]
